FAERS Safety Report 5815846-2 (Version None)
Quarter: 2008Q3

REPORT INFORMATION
  Report Type: 
  Country: None (occurrence: None)
  Receive Date: 20080715
  Receipt Date: 20080505
  Transmission Date: 20090109
  Serious: Yes (Disabling, Other)
  Sender: FDA-Public Use
  Company Number: SP01909

PATIENT
  Age: 79 Year
  Sex: Female
  Weight: 60.782 kg

DRUGS (15)
  1. OSMOPREP [Suspect]
     Indication: COLONOSCOPY
     Dosage: 48 GM (SPLIT DOSE), ORAL
     Route: 048
     Dates: start: 20080331, end: 20080401
  2. LISINOPRIL [Concomitant]
  3. HYDROCHLOROTHIAZIDE [Concomitant]
  4. METOPROLOL TARTRATE [Concomitant]
  5. MASALAMINE [Concomitant]
  6. ESOMEPRAZOLE [Concomitant]
  7. LEVOTHYROXINE SODIUM [Concomitant]
  8. NABUMETONE [Concomitant]
  9. ALPRAZOLAM [Concomitant]
  10. RALOXIFENE HCL [Concomitant]
  11. PAYLLIUM FIBER [Concomitant]
  12. CALCIUM [Concomitant]
  13. MULTI-VITAMIN [Concomitant]
  14. FISH OIL [Concomitant]
  15. ASPIRIN [Concomitant]

REACTIONS (2)
  - BLOOD CREATININE INCREASED [None]
  - RENAL FAILURE [None]
